FAERS Safety Report 4647537-8 (Version None)
Quarter: 2005Q2

REPORT INFORMATION
  Report Type: 
  Country: None (occurrence: None)
  Receive Date: 20050428
  Receipt Date: 20050420
  Transmission Date: 20051028
  Serious: Yes (Hospitalization, Other)
  Sender: FDA-Public Use
  Company Number: ES-MERCK-0504ESP00040

PATIENT
  Age: 74 Year
  Sex: Male

DRUGS (6)
  1. ZETIA [Suspect]
     Indication: PROPHYLAXIS
     Route: 048
     Dates: start: 20050217, end: 20050222
  2. ATORVASTATIN CALCIUM [Concomitant]
     Indication: PROPHYLAXIS
     Route: 048
  3. [THERAPY UNSPECIFIED] [Concomitant]
     Route: 065
  4. [THERAPY UNSPECIFIED] [Concomitant]
     Route: 065
  5. [THERAPY UNSPECIFIED] [Concomitant]
     Route: 065
  6. [THERAPY UNSPECIFIED] [Concomitant]
     Route: 065

REACTIONS (6)
  - ABDOMINAL PAIN [None]
  - GAMMA-GLUTAMYLTRANSFERASE INCREASED [None]
  - NAUSEA [None]
  - PRURITUS [None]
  - RASH [None]
  - RENAL FAILURE [None]
